FAERS Safety Report 14583614 (Version 16)
Quarter: 2020Q4

REPORT INFORMATION
  Report Type: Spontaneous
  Country: US (occurrence: US)
  Receive Date: 20180228
  Receipt Date: 20201028
  Transmission Date: 20210113
  Serious: Yes (Other)
  Sender: FDA-Public Use
  Company Number: US-PFIZER INC-2017540655

PATIENT
  Age: 54 Year
  Sex: Female
  Weight: 74 kg

DRUGS (14)
  1. LYRICA [Suspect]
     Active Substance: PREGABALIN
     Indication: FIBROMYALGIA
     Dosage: 50 MG, 2X/DAY
     Route: 048
     Dates: start: 20180719
  2. BUSPIRONE [Concomitant]
     Active Substance: BUSPIRONE HYDROCHLORIDE
     Indication: PAIN
     Dosage: 15 MG, DAILY (5 MG IN THE MORNING AND 10 MG AT BEDTIME)
     Route: 048
     Dates: start: 2016
  3. LYRICA [Suspect]
     Active Substance: PREGABALIN
     Indication: CERVICAL SPINAL STENOSIS
     Dosage: 50 MG, 3X/DAY
     Route: 048
     Dates: start: 2016
  4. LYRICA [Suspect]
     Active Substance: PREGABALIN
     Dosage: 100 MG, 2X/DAY (BID)
     Route: 048
  5. LYRICA [Suspect]
     Active Substance: PREGABALIN
     Dosage: 50 MG, 4X/DAY (30 DAYS, QTY 120 CAPSULES)
     Route: 048
  6. ORPHENADRINE CITRATE. [Concomitant]
     Active Substance: ORPHENADRINE CITRATE
     Indication: PAIN
     Dosage: 100 MG, 2X/DAY
     Route: 048
     Dates: start: 2016
  7. TRAZODONE [Concomitant]
     Active Substance: TRAZODONE HYDROCHLORIDE
     Indication: SLEEP DISORDER
     Dosage: 50 MG, AS NEEDED (AT BEDTIME AS NEEDED)
     Route: 048
     Dates: start: 201711
  8. LYRICA [Suspect]
     Active Substance: PREGABALIN
     Indication: PAIN
     Dosage: 50 MG, 2X/DAY
     Route: 048
  9. LYRICA [Suspect]
     Active Substance: PREGABALIN
     Dosage: 200 MG, DAILY (50 IN MORNING, 50 IN AFTERNOON, 100 MG AT NIGHT)
  10. BUPROPION. [Concomitant]
     Active Substance: BUPROPION
     Indication: PAIN
     Dosage: 100 MG, 1X/DAY
     Route: 048
     Dates: start: 2016
  11. LYRICA [Suspect]
     Active Substance: PREGABALIN
     Indication: NECK PAIN
     Dosage: 100 MG, 2X/DAY
  12. LYRICA [Suspect]
     Active Substance: PREGABALIN
     Indication: BACK PAIN
     Dosage: 50 MG (THROUGHOUT THE DAY)
  13. LYRICA [Suspect]
     Active Substance: PREGABALIN
     Dosage: 50 MG, 4X/DAY (QID)
     Route: 048
  14. LYRICA [Suspect]
     Active Substance: PREGABALIN
     Dosage: 50 MG, 4X/DAY (TAKE 1 CAPSULE BY MOUTH 4 TIMES DAILY)
     Route: 048

REACTIONS (20)
  - Somnolence [Unknown]
  - Abnormal behaviour [Unknown]
  - Depressed mood [Unknown]
  - Loss of employment [Unknown]
  - Spinal disorder [Unknown]
  - Nausea [Unknown]
  - Abdominal pain upper [Unknown]
  - Muscle tightness [Unknown]
  - Hypoaesthesia [Not Recovered/Not Resolved]
  - Intentional product use issue [Unknown]
  - Head discomfort [Unknown]
  - Vision blurred [Unknown]
  - Feeling hot [Unknown]
  - Multiple sclerosis [Unknown]
  - Anxiety [Not Recovered/Not Resolved]
  - Lyme disease [Unknown]
  - Emotional disorder [Unknown]
  - Dizziness [Unknown]
  - Gait disturbance [Not Recovered/Not Resolved]
  - Central nervous system lesion [Unknown]

NARRATIVE: CASE EVENT DATE: 20180619
